FAERS Safety Report 4554227-9 (Version None)
Quarter: 2004Q4

REPORT INFORMATION
  Report Type: 
  Country: None (occurrence: None)
  Receive Date: 20041230
  Receipt Date: 20040708
  Transmission Date: 20050328
  Serious: No
  Sender: FDA-Public Use
  Company Number: 04-07-0990

PATIENT
  Age: 48 Year
  Sex: Female
  Weight: 78.9259 kg

DRUGS (3)
  1. CLOZAPINE [Suspect]
     Indication: SCHIZOAFFECTIVE DISORDER
     Dosage: 100-875MG QD ORAL
     Route: 048
     Dates: start: 20040303, end: 20040721
  2. LAMICTAL [Concomitant]
  3. DEPAKOTE [Concomitant]

REACTIONS (2)
  - LEUKOPENIA [None]
  - PLATELET COUNT DECREASED [None]
